FAERS Safety Report 7280268-7 (Version None)
Quarter: 2011Q1

REPORT INFORMATION
  Report Type: 
  Country: None (occurrence: None)
  Receive Date: 20110208
  Receipt Date: 20100422
  Transmission Date: 20110831
  Serious: Yes (Other)
  Sender: FDA-Public Use
  Company Number: US-BAXTER-2011BH002870

PATIENT
  Age: 18 Year
  Sex: Male

DRUGS (2)
  1. FEIBA VH [Suspect]
     Indication: FACTOR VIII DEFICIENCY
     Route: 042
     Dates: start: 20071105, end: 20090119
  2. NOVOSEVEN [Concomitant]
     Indication: FACTOR VIII DEFICIENCY
     Route: 042
     Dates: start: 20050930, end: 20071105

REACTIONS (1)
  - FACTOR VIII INHIBITION [None]
